FAERS Safety Report 18783952 (Version 1)
Quarter: 2021Q1

REPORT INFORMATION
  Report Type: Spontaneous
  Country: AT (occurrence: AT)
  Receive Date: 20210125
  Receipt Date: 20210125
  Transmission Date: 20210419
  Serious: Yes (Other)
  Sender: FDA-Public Use
  Company Number: AT-AMERICAN REGENT INC-2021000251

PATIENT
  Age: 32 Year
  Sex: Female

DRUGS (1)
  1. FERINJECT [Suspect]
     Active Substance: FERRIC CARBOXYMALTOSE
     Indication: PRODUCT USED FOR UNKNOWN INDICATION
     Dosage: ACCORDING TO THE SMPC (1 TOTAL)
     Route: 042
     Dates: start: 20201015, end: 20201015

REACTIONS (4)
  - Hyperhidrosis [Unknown]
  - Circulatory collapse [Unknown]
  - Nausea [Unknown]
  - Epilepsy [Unknown]

NARRATIVE: CASE EVENT DATE: 20201015
